FAERS Safety Report 6712946-X (Version None)
Quarter: 2010Q2

REPORT INFORMATION
  Report Type: 
  Country: None (occurrence: None)
  Receive Date: 20100506
  Receipt Date: 20100430
  Transmission Date: 20101027
  Serious: Yes (Other)
  Sender: FDA-Public Use
  Company Number: US-SANOFI-AVENTIS-2010SA000670

PATIENT
  Age: 86 Year
  Sex: Male

DRUGS (6)
  1. MULTAQ [Suspect]
     Indication: ATRIAL FIBRILLATION
     Route: 048
     Dates: start: 20091118
  2. METOPROLOL [Concomitant]
     Indication: BLOOD PRESSURE
     Route: 065
  3. HYDRALAZINE HCL [Concomitant]
     Indication: BLOOD PRESSURE
     Route: 065
  4. OPHTHALMOLOGICALS [Concomitant]
  5. VITAMINS [Concomitant]
  6. ASPIRIN [Concomitant]

REACTIONS (7)
  - CARDIAC FAILURE CONGESTIVE [None]
  - CONDITION AGGRAVATED [None]
  - COUGH [None]
  - FATIGUE [None]
  - OEDEMA PERIPHERAL [None]
  - PLEURAL EFFUSION [None]
  - WEIGHT FLUCTUATION [None]
